FAERS Safety Report 15681732 (Version 2)
Quarter: 2018Q4

REPORT INFORMATION
  Report Type: Spontaneous
  Country: CH (occurrence: CH)
  Receive Date: 20181203
  Receipt Date: 20181207
  Transmission Date: 20190205
  Serious: Yes (Hospitalization, Other)
  Sender: FDA-Public Use
  Company Number: CH-PFIZER INC-2018490447

PATIENT
  Age: 76 Year
  Sex: Female

DRUGS (8)
  1. PREDNISON STREULI [Concomitant]
     Active Substance: PREDNISONE
     Dosage: 75 MG, DAILY DOSAGE: 1-1/2-0-0  PER DAY
     Route: 048
  2. NEBILET [Concomitant]
     Active Substance: NEBIVOLOL
     Dosage: 5 MG, DAILY
     Route: 048
  3. CIRCADIN [Concomitant]
     Active Substance: MELATONIN
     Dosage: 2 MG, DAILY,
     Route: 048
     Dates: end: 201810
  4. BACTRIM [Concomitant]
     Active Substance: SULFAMETHOXAZOLE\TRIMETHOPRIM
     Dosage: 1 DF, THREE TIMES A WEEK (MONDAY, WEDNESDAY, FRIDAY)
     Route: 048
  5. FLUCONAZOL SANDOZ [Concomitant]
     Active Substance: FLUCONAZOLE
     Dosage: 200 MG, WEEKLY, ON MONDAY
     Route: 048
  6. PANTOZOL [Concomitant]
     Active Substance: PANTOPRAZOLE SODIUM
     Dosage: 20 MG, DAILY
     Route: 048
  7. ATACAND [Concomitant]
     Active Substance: CANDESARTAN CILEXETIL
     Dosage: 8 MG, DAILY
     Route: 048
  8. EFFEXOR XR [Suspect]
     Active Substance: VENLAFAXINE HYDROCHLORIDE
     Dosage: 75 MG, DAILY
     Route: 048

REACTIONS (4)
  - Drug use disorder [Recovered/Resolved]
  - Intentional product use issue [Unknown]
  - Hyponatraemia [Recovered/Resolved]
  - Inappropriate antidiuretic hormone secretion [Recovered/Resolved]

NARRATIVE: CASE EVENT DATE: 201810
